FAERS Safety Report 18599058 (Version 1)
Quarter: 2020Q4

REPORT INFORMATION
  Report Type: Other
  Country: US (occurrence: US)
  Receive Date: 20201210
  Receipt Date: 20201210
  Transmission Date: 20210114
  Serious: Yes (Other)
  Sender: FDA-Public Use
  Company Number: US-ROCHE-2724466

PATIENT
  Sex: Female
  Weight: 97.52 kg

DRUGS (6)
  1. TIZANIDINE. [Concomitant]
     Active Substance: TIZANIDINE
  2. GABAPENTIN. [Concomitant]
     Active Substance: GABAPENTIN
  3. OCREVUS [Suspect]
     Active Substance: OCRELIZUMAB
     Dosage: INFUSE 600 MG Q 6 MONTHS
     Route: 065
  4. OCREVUS [Suspect]
     Active Substance: OCRELIZUMAB
     Indication: MULTIPLE SCLEROSIS
     Dosage: INFUSE 300 MG DAY 0, INFUSE 300 MG D 15
     Route: 065
  5. BACLOFEN. [Concomitant]
     Active Substance: BACLOFEN
  6. OCREVUS [Suspect]
     Active Substance: OCRELIZUMAB
     Indication: RELAPSING-REMITTING MULTIPLE SCLEROSIS
     Dosage: ONGOING: UNKNOWN
     Route: 065

REACTIONS (2)
  - Pneumonia [Unknown]
  - Lung neoplasm [Not Recovered/Not Resolved]
